FAERS Safety Report 19913813 (Version 1)
Quarter: 2021Q4

REPORT INFORMATION
  Report Type: Report from Study
  Country: US (occurrence: US)
  Receive Date: 20211004
  Receipt Date: 20211004
  Transmission Date: 20220303
  Serious: Yes (Hospitalization)
  Sender: FDA-Public Use
  Company Number: US-BAYER-2021A218981

PATIENT
  Age: 66 Year
  Sex: Female

DRUGS (1)
  1. STIVARGA [Suspect]
     Active Substance: REGORAFENIB
     Indication: Malignant peritoneal neoplasm
     Dosage: 40 MG, QD FOR 21 DAYS THEN 7 DAYS OFF
     Route: 048
     Dates: start: 20210901, end: 202109

REACTIONS (6)
  - Dehydration [Recovered/Resolved]
  - Rash [Recovered/Resolved]
  - Vomiting [Recovered/Resolved]
  - Abdominal pain [Recovered/Resolved]
  - Chest pain [Recovering/Resolving]
  - Off label use [None]

NARRATIVE: CASE EVENT DATE: 20210901
